FAERS Safety Report 6195211-1 (Version None)
Quarter: 2009Q2

REPORT INFORMATION
  Report Type: 
  Country: None (occurrence: None)
  Receive Date: 20090519
  Receipt Date: 20090510
  Transmission Date: 20091009
  Serious: Yes (Other)
  Sender: FDA-Public Use
  Company Number: US-MERCK-0905USA01581

PATIENT
  Age: 71 Year
  Sex: Female

DRUGS (4)
  1. DECADRON [Suspect]
     Indication: MULTIPLE MYELOMA
     Route: 048
  2. REVLIMID [Suspect]
     Indication: MULTIPLE MYELOMA
     Route: 048
     Dates: start: 20081106, end: 20090101
  3. REVLIMID [Suspect]
     Route: 048
     Dates: start: 20090201, end: 20090201
  4. REVLIMID [Suspect]
     Route: 048
     Dates: start: 20090401

REACTIONS (4)
  - ADVERSE DRUG REACTION [None]
  - MUCOSAL INFLAMMATION [None]
  - ORAL MUCOSAL DISCOLOURATION [None]
  - ORAL PRURITUS [None]
